FAERS Safety Report 7484291-9 (Version None)
Quarter: 2011Q2

REPORT INFORMATION
  Report Type: 
  Country: None (occurrence: None)
  Receive Date: 20110517
  Receipt Date: 20110504
  Transmission Date: 20111010
  Serious: Yes (Other)
  Sender: FDA-Public Use
  Company Number: CN-JNJFOC-20110505154

PATIENT
  Age: 12 Year
  Sex: Male
  Weight: 65 kg

DRUGS (6)
  1. CONCERTA [Suspect]
     Indication: ATTENTION DEFICIT/HYPERACTIVITY DISORDER
     Route: 048
     Dates: start: 20100101, end: 20101124
  2. CONCERTA [Suspect]
     Route: 048
     Dates: start: 20110301
  3. CONCERTA [Suspect]
     Indication: HYPERKINESIA
     Route: 048
     Dates: start: 20110301
  4. CONCERTA [Suspect]
     Route: 048
     Dates: start: 20090101, end: 20100101
  5. CONCERTA [Suspect]
     Route: 048
     Dates: start: 20090101, end: 20100101
  6. CONCERTA [Suspect]
     Route: 048
     Dates: start: 20100101, end: 20101124

REACTIONS (3)
  - ABDOMINAL DISCOMFORT [None]
  - BONE DISORDER [None]
  - DECREASED APPETITE [None]
